FAERS Safety Report 24200026 (Version 1)
Quarter: 2024Q3

REPORT INFORMATION
  Report Type: Spontaneous
  Country: FR (occurrence: FR)
  Receive Date: 20240812
  Receipt Date: 20240812
  Transmission Date: 20241016
  Serious: Yes (Hospitalization)
  Sender: BAYER
  Company Number: None

PATIENT
  Age: 13 Year
  Sex: Female

DRUGS (3)
  1. BILTRICIDE [Suspect]
     Active Substance: PRAZIQUANTEL
     Indication: Infection parasitic
     Route: 048
  2. STROMECTOL [Suspect]
     Active Substance: IVERMECTIN
     Indication: Infection parasitic
     Route: 048
  3. ALBENDAZOLE\QUINFAMIDE [Suspect]
     Active Substance: ALBENDAZOLE\QUINFAMIDE
     Indication: Infection parasitic
     Route: 048

REACTIONS (2)
  - Neutropenia [Recovered/Resolved]
  - Thrombocytopenia [Recovered/Resolved]

NARRATIVE: CASE EVENT DATE: 20240609
